FAERS Safety Report 7691253-5 (Version None)
Quarter: 2011Q3

REPORT INFORMATION
  Report Type: 
  Country: None (occurrence: None)
  Receive Date: 20110815
  Receipt Date: 20110809
  Transmission Date: 20111222
  Serious: Yes (Other)
  Sender: FDA-Public Use
  Company Number: TPA2011A04558

PATIENT
  Sex: Male

DRUGS (1)
  1. ACTOS [Suspect]
     Dates: start: 20071101, end: 20110601

REACTIONS (1)
  - BLADDER CANCER [None]
